FAERS Safety Report 6869685-4 (Version None)
Quarter: 2010Q3

REPORT INFORMATION
  Report Type: 
  Country: None (occurrence: None)
  Receive Date: 20100722
  Receipt Date: 20080812
  Transmission Date: 20110219
  Serious: No
  Sender: FDA-Public Use
  Company Number: US-PFIZER INC-2008067901

PATIENT
  Sex: Female
  Weight: 73.6 kg

DRUGS (4)
  1. CHANTIX [Suspect]
     Indication: SMOKING CESSATION THERAPY
     Dates: start: 20080101, end: 20080601
  2. GEODON [Concomitant]
  3. ATIVAN [Concomitant]
  4. INDERAL [Concomitant]

REACTIONS (4)
  - ABDOMINAL PAIN UPPER [None]
  - GASTRIC ULCER [None]
  - MALAISE [None]
  - VOMITING [None]
